FAERS Safety Report 5088598-4 (Version None)
Quarter: 2006Q3

REPORT INFORMATION
  Report Type: 
  Country: None (occurrence: None)
  Receive Date: 20060825
  Receipt Date: 20060818
  Transmission Date: 20061208
  Serious: Yes (Hospitalization)
  Sender: FDA-Public Use
  Company Number: US-JNJFOC-20060804477

PATIENT
  Age: 23 Year
  Sex: Female

DRUGS (1)
  1. ORTHO EVRA [Suspect]
     Indication: DRUG USE FOR UNKNOWN INDICATION

REACTIONS (4)
  - COGNITIVE DISORDER [None]
  - DIZZINESS [None]
  - NAUSEA [None]
  - VISION BLURRED [None]
